FAERS Safety Report 7912115-1 (Version None)
Quarter: 2011Q4

REPORT INFORMATION
  Report Type: 
  Country: None (occurrence: None)
  Receive Date: 20111114
  Receipt Date: 20111101
  Transmission Date: 20120403
  Serious: Yes (Other)
  Sender: FDA-Public Use
  Company Number: JP-NAPPMUNDI-MAG-2011-0001783

PATIENT
  Sex: Male

DRUGS (18)
  1. GASTER                             /00706001/ [Concomitant]
     Indication: PROPHYLAXIS
     Dosage: UNK
     Dates: end: 20110615
  2. MUCODYNE [Concomitant]
     Dosage: UNK
     Route: 048
     Dates: end: 20110702
  3. NAIXAN                             /00256202/ [Concomitant]
     Indication: CANCER PAIN
     Dosage: UNK
     Dates: start: 20110616
  4. ONON [Concomitant]
     Dosage: UNK
     Route: 048
     Dates: end: 20110702
  5. HOKUNALIN                          /00654902/ [Concomitant]
     Dosage: UNK
  6. ZOSYN [Concomitant]
     Dosage: UNK
     Dates: start: 20110615, end: 20110620
  7. FUROSEMIDE [Concomitant]
     Indication: GASTRIC CANCER
     Dosage: UNK
     Route: 048
     Dates: start: 20110614, end: 20110615
  8. OXYCODONE HCL [Suspect]
     Indication: CANCER PAIN
     Dosage: 10 MG, DAILY
     Dates: start: 20110614, end: 20110704
  9. LOXONIN [Concomitant]
     Indication: CANCER PAIN
     Dosage: UNK
     Dates: end: 20110615
  10. FERRO-GRADUMET                     /00023503/ [Concomitant]
     Indication: GASTRIC CANCER
     Dosage: UNK
     Route: 048
     Dates: end: 20110702
  11. THEO-DUR [Concomitant]
     Dosage: UNK
     Route: 048
     Dates: end: 20110702
  12. ZOLPIDEM [Suspect]
     Route: 048
  13. PROCHLORPERAZINE [Concomitant]
     Indication: PROPHYLAXIS
     Dosage: UNK
     Route: 048
     Dates: end: 20110702
  14. RABEPRAZOLE SODIUM [Concomitant]
     Indication: PROPHYLAXIS
     Dosage: UNK
     Dates: start: 20110616
  15. SPIRONOLACTONE [Concomitant]
     Indication: GASTRIC CANCER
     Dosage: UNK
     Dates: start: 20110614, end: 20110615
  16. CEFTRIAXONE SODIUM [Concomitant]
     Dosage: UNK
     Dates: end: 20110614
  17. OXYCODONE HCL [Suspect]
     Indication: CANCER PAIN
     Dosage: 40 MG, DAILY
     Route: 048
     Dates: start: 20110614, end: 20110704
  18. MAGNESIUM SULFATE [Concomitant]
     Indication: PROPHYLAXIS
     Dosage: UNK

REACTIONS (3)
  - FALL [None]
  - CONTUSION [None]
  - DELIRIUM [None]
